FAERS Safety Report 4490775-8 (Version None)
Quarter: 2004Q4

REPORT INFORMATION
  Report Type: 
  Country: None (occurrence: None)
  Receive Date: 20041026
  Receipt Date: 20041012
  Transmission Date: 20050328
  Serious: Yes (Disabling)
  Sender: FDA-Public Use
  Company Number: B0347857A

PATIENT
  Age: 22 Year
  Sex: Male

DRUGS (3)
  1. EPIVIR [Suspect]
     Indication: HIV INFECTION
     Dates: start: 19970901
  2. STAVUDINE (STAVUDINE) [Suspect]
     Indication: HIV INFECTION
     Dates: start: 19970901
  3. INDINAVIR (INDINAVIR SULFATE) [Suspect]
     Indication: HIV INFECTION
     Dates: start: 19970901

REACTIONS (4)
  - ASEPTIC NECROSIS BONE [None]
  - SYNOVITIS [None]
  - THROMBOSIS [None]
  - VASCULITIS [None]
